FAERS Safety Report 9263781 (Version 2)
Quarter: 2013Q2

REPORT INFORMATION
  Report Type: Spontaneous
  Country: US (occurrence: US)
  Receive Date: 20130430
  Receipt Date: 20130508
  Transmission Date: 20140414
  Serious: Yes (Hospitalization)
  Sender: FDA-Public Use
  Company Number: US-GILEAD-2013-0074231

PATIENT
  Age: 82 Year
  Sex: Female

DRUGS (2)
  1. LETAIRIS [Suspect]
     Indication: CHRONIC OBSTRUCTIVE PULMONARY DISEASE
     Dosage: 5 MG, QD
     Route: 048
     Dates: start: 20120111
  2. REVATIO [Concomitant]

REACTIONS (2)
  - Cholelithiasis [Unknown]
  - Gallbladder disorder [Unknown]
